FAERS Safety Report 10751347 (Version 1)
Quarter: 2015Q1

REPORT INFORMATION
  Report Type: Spontaneous
  Country: US (occurrence: US)
  Receive Date: 20150130
  Receipt Date: 20150130
  Transmission Date: 20150721
  Serious: No
  Sender: FDA-Public Use
  Company Number: US-ELI_LILLY_AND_COMPANY-US201501006666

PATIENT

DRUGS (1)
  1. CYMBALTA [Suspect]
     Active Substance: DULOXETINE HYDROCHLORIDE
     Indication: FIBROMYALGIA
     Route: 065

REACTIONS (6)
  - Depression [Unknown]
  - Paraesthesia [Unknown]
  - Drug withdrawal syndrome [Unknown]
  - Vertigo [Unknown]
  - Anxiety [Unknown]
  - Nausea [Unknown]
